FAERS Safety Report 7806107-0 (Version None)
Quarter: 2011Q4

REPORT INFORMATION
  Report Type: 
  Country: None (occurrence: None)
  Receive Date: 20111011
  Receipt Date: 20110929
  Transmission Date: 20120403
  Serious: Yes (Other)
  Sender: FDA-Public Use
  Company Number: US-US-EMD SERONO, INC.-7087723

PATIENT
  Sex: Male

DRUGS (3)
  1. SEROSTIM [Suspect]
     Indication: HIV WASTING SYNDROME
  2. SEROSTIM [Suspect]
  3. SEROSTIM [Suspect]

REACTIONS (4)
  - CHOLECYSTITIS [None]
  - PANCREATITIS [None]
  - CHOLELITHIASIS [None]
  - EYE SWELLING [None]
